FAERS Safety Report 6121547-6 (Version None)
Quarter: 2009Q1

REPORT INFORMATION
  Report Type: 
  Country: None (occurrence: None)
  Receive Date: 20090317
  Receipt Date: 20090312
  Transmission Date: 20090719
  Serious: Yes (Hospitalization)
  Sender: FDA-Public Use
  Company Number: JP-ASTRAZENECA-2009AP01324

PATIENT
  Age: 81 Year
  Sex: Male
  Weight: 74 kg

DRUGS (17)
  1. CRESTOR [Suspect]
     Indication: HYPERLIPIDAEMIA
     Route: 048
     Dates: start: 20090128, end: 20090205
  2. ASPIRIN [Concomitant]
     Indication: ANGINA PECTORIS
     Route: 048
     Dates: start: 20030407
  3. ARTIST [Concomitant]
     Indication: ANGINA PECTORIS
     Route: 048
     Dates: start: 20030407
  4. HERBESSER [Concomitant]
     Indication: ANGINA PECTORIS
     Route: 048
     Dates: start: 20030407
  5. OLMETEC [Concomitant]
     Indication: HYPERTENSION
     Route: 048
     Dates: start: 20090128
  6. SIGMART [Concomitant]
     Indication: ANGINA PECTORIS
     Route: 048
     Dates: start: 20090128
  7. EPADEL [Concomitant]
     Indication: HYPERLIPIDAEMIA
     Route: 048
     Dates: start: 20090128
  8. LUPRAC [Concomitant]
     Indication: CARDIAC FAILURE
     Route: 048
     Dates: start: 20090129
  9. ITOROL [Concomitant]
     Indication: ANGINA PECTORIS
     Route: 048
     Dates: start: 20090128
  10. HOKUNALIN:TAPE [Concomitant]
     Indication: BRONCHITIS
     Route: 062
     Dates: start: 20090128
  11. MEDICON [Concomitant]
     Indication: BRONCHITIS
     Route: 048
     Dates: start: 20090128
  12. HUSTAGIN [Concomitant]
     Indication: BRONCHITIS
     Route: 048
     Dates: start: 20090128
  13. METHYLEPHEDRINE [Concomitant]
     Indication: BRONCHITIS
     Route: 048
     Dates: start: 20090128
  14. GENINAX [Concomitant]
     Indication: BRONCHITIS
     Route: 048
     Dates: start: 20090202, end: 20090206
  15. MUCOSOLVAN [Concomitant]
     Indication: BRONCHITIS
     Route: 048
     Dates: start: 20090202, end: 20090206
  16. DORNER [Concomitant]
     Indication: ANGINA PECTORIS
     Route: 048
     Dates: start: 20090302
  17. SOLANAX [Concomitant]
     Indication: ANXIETY DISORDER
     Route: 048

REACTIONS (1)
  - RENAL IMPAIRMENT [None]
